FAERS Safety Report 9018035 (Version 1)
Quarter: 2013Q1

REPORT INFORMATION
  Report Type: Spontaneous
  Country: US (occurrence: None)
  Receive Date: 20130110
  Receipt Date: 20130110
  Transmission Date: 20140127
  Serious: No
  Sender: FDA-Public Use
  Company Number: None

PATIENT
  Sex: Female
  Weight: 79.6 kg

DRUGS (4)
  1. MERCAPTOPURINE [Suspect]
  2. DEXAMETHASONE [Suspect]
  3. METHOTREXATE [Suspect]
  4. VINCRISTINE SULFATE [Suspect]

REACTIONS (1)
  - Pancytopenia [None]
